FAERS Safety Report 10736287 (Version 1)
Quarter: 2015Q1

REPORT INFORMATION
  Report Type: Spontaneous
  Country: US (occurrence: None)
  Receive Date: 20150121
  Receipt Date: 20150121
  Transmission Date: 20150721
  Serious: Yes (Hospitalization)
  Sender: FDA-Public Use
  Company Number: 201501984

PATIENT
  Age: 45 Year
  Sex: Male

DRUGS (1)
  1. TESTIM [Suspect]
     Active Substance: TESTOSTERONE
     Route: 062
     Dates: start: 201008, end: 201201

REACTIONS (3)
  - Myocardial infarction [None]
  - Economic problem [None]
  - Emotional disorder [None]

NARRATIVE: CASE EVENT DATE: 20120128
